FAERS Safety Report 23482579 (Version 1)
Quarter: 2024Q1

REPORT INFORMATION
  Report Type: Spontaneous
  Country: US (occurrence: None)
  Receive Date: 20240204
  Receipt Date: 20240204
  Transmission Date: 20240410
  Serious: Yes (Life-Threatening, Disabling)
  Sender: FDA-Public Use
  Company Number: None

PATIENT
  Age: 58 Year
  Sex: Female
  Weight: 56.25 kg

DRUGS (4)
  1. DESVENLAFAXINE [Suspect]
     Active Substance: DESVENLAFAXINE
     Indication: Depression
     Dosage: OTHER QUANTITY : 1 TABLET(S);?
     Route: 048
     Dates: start: 20210227, end: 20240101
  2. NATURE-THROID [Concomitant]
     Active Substance: THYROID, PORCINE
  3. Mirtazaphine [Concomitant]
  4. WELLBUTRIN [Concomitant]
     Active Substance: BUPROPION HYDROCHLORIDE

REACTIONS (11)
  - Influenza like illness [None]
  - Depressed mood [None]
  - Suicidal ideation [None]
  - Sexual dysfunction [None]
  - Anxiety [None]
  - Anhedonia [None]
  - Pelvic floor dysfunction [None]
  - Cognitive disorder [None]
  - Decreased appetite [None]
  - Neuropathy peripheral [None]
  - Loss of personal independence in daily activities [None]

NARRATIVE: CASE EVENT DATE: 20230702
